FAERS Safety Report 23163903 (Version 1)
Quarter: 2023Q4

REPORT INFORMATION
  Report Type: Report from Study
  Country: GB (occurrence: GB)
  Receive Date: 20231109
  Receipt Date: 20231109
  Transmission Date: 20240110
  Serious: Yes (Hospitalization, Other)
  Sender: FDA-Public Use
  Company Number: GB-ABBVIE-5434604

PATIENT
  Age: 81 Year
  Sex: Female
  Weight: 41 kg

DRUGS (2)
  1. HUMIRA [Suspect]
     Active Substance: ADALIMUMAB
     Indication: Rheumatoid arthritis
     Route: 058
     Dates: start: 20070727
  2. Covid-19 Vaccine [Concomitant]
     Indication: Product used for unknown indication
     Dates: start: 20231028

REACTIONS (7)
  - Dizziness [Unknown]
  - Pneumonia [Recovered/Resolved]
  - Confusional state [Unknown]
  - COVID-19 [Unknown]
  - Muscular weakness [Unknown]
  - Mobility decreased [Unknown]
  - Lower respiratory tract infection [Unknown]

NARRATIVE: CASE EVENT DATE: 20230101
